FAERS Safety Report 4723667-7 (Version None)
Quarter: 2005Q3

REPORT INFORMATION
  Report Type: 
  Country: None (occurrence: None)
  Receive Date: 20050725
  Receipt Date: 20050718
  Transmission Date: 20060218
  Serious: Yes (Hospitalization)
  Sender: FDA-Public Use
  Company Number: 200512398FR

PATIENT
  Age: 81 Year
  Sex: Female

DRUGS (9)
  1. LASIX [Suspect]
     Indication: ESSENTIAL HYPERTENSION
     Route: 048
  2. VOLTAREN [Suspect]
     Route: 048
     Dates: start: 20050525, end: 20050528
  3. LEVOTHYROX [Suspect]
     Indication: HYPOTHYROIDISM
     Route: 048
  4. ARICEPT [Suspect]
     Indication: DEMENTIA ALZHEIMER'S TYPE
     Route: 048
  5. EBIXA [Suspect]
     Indication: DEMENTIA ALZHEIMER'S TYPE
     Route: 048
     Dates: start: 20050512, end: 20050528
  6. NICARDIPINE HCL [Suspect]
     Indication: ESSENTIAL HYPERTENSION
     Route: 048
  7. POTASSIUM CHLORIDE [Concomitant]
     Route: 048
  8. EQUANIL [Concomitant]
     Dosage: DOSE UNIT: UNITS
     Route: 048
  9. IMOVANE [Concomitant]
     Route: 048

REACTIONS (6)
  - CONJUNCTIVITIS [None]
  - DYSPNOEA [None]
  - OEDEMA PERIPHERAL [None]
  - RASH ERYTHEMATOUS [None]
  - RASH MACULO-PAPULAR [None]
  - VOMITING [None]
